FAERS Safety Report 9949451 (Version 3)
Quarter: 2014Q3

REPORT INFORMATION
  Report Type: Spontaneous
  Country: US (occurrence: None)
  Receive Date: 20140122
  Receipt Date: 20140722
  Transmission Date: 20150326
  Serious: No
  Sender: FDA-Public Use
  Company Number: AEGR000190

PATIENT
  Age: 71 Year
  Sex: Female
  Weight: 90.7 kg

DRUGS (17)
  1. PANTOPRAZOLE (PANTOPRAZOLE SODIUM SESQUIHYDRATE) [Concomitant]
  2. DIOVAN [Concomitant]
     Active Substance: VALSARTAN
  3. COENZYME Q10 [Concomitant]
     Active Substance: UBIDECARENONE
  4. ASA (ASA) [Concomitant]
  5. VITAMIN C [Concomitant]
     Active Substance: ASCORBIC ACID
  6. FAMOTIDINE (FAMOTIDINE) [Concomitant]
     Active Substance: FAMOTIDINE
  7. CARVEDILOL (CARVEDILOL) [Concomitant]
     Active Substance: CARVEDILOL
  8. JUXTAPID [Suspect]
     Active Substance: LOMITAPIDE MESYLATE
     Indication: TYPE IIA HYPERLIPIDAEMIA
     Route: 048
     Dates: start: 201310
  9. VITAMIN E (TOCOPHERYL ACID SUCCINATE) [Concomitant]
  10. OMEGA 3 (SALMON OIL) [Concomitant]
  11. VESICARE [Concomitant]
     Active Substance: SOLIFENACIN SUCCINATE
  12. METFORMIN [Concomitant]
     Active Substance: METFORMIN HYDROCHLORIDE
  13. ENABLEX (DARIFENACIN HYDROBROMIDE) [Concomitant]
  14. GLIPIZIDE (GLIPIZIDE) [Concomitant]
     Active Substance: GLIPIZIDE
  15. ISOSORBIDE [Concomitant]
     Active Substance: ISOSORBIDE
  16. IRON (ASCORBIC ACID, BETAINE HYDROCHLORIDE, COPPER, CYANOCOBALAMIN, FOLIC ACID, IRON, MANGANESE, NICOTINAMIDE, PYRIDOXINE HYDROCHLORIDE, RIBOFLAVIN, THIAMINE HYDROCHLORIDE) [Concomitant]
  17. VITAMIN D (ERGOCALCIFEROL) [Concomitant]
     Active Substance: ERGOCALCIFEROL

REACTIONS (6)
  - Nausea [None]
  - Inappropriate schedule of drug administration [None]
  - Diarrhoea [None]
  - Dizziness [None]
  - Weight decreased [None]
  - Fatigue [None]

NARRATIVE: CASE EVENT DATE: 201310
